FAERS Safety Report 9174649 (Version 1)
Quarter: 2013Q1

REPORT INFORMATION
  Report Type: Spontaneous
  Country: IN (occurrence: None)
  Receive Date: 20130318
  Receipt Date: 20130318
  Transmission Date: 20140127
  Serious: Yes (Hospitalization, Other)
  Sender: FDA-Public Use
  Company Number: FK201300764

PATIENT
  Age: 6 Year
  Sex: Female

DRUGS (1)
  1. HALOPERIDOL [Suspect]
     Indication: PRODUCT USED FOR UNKNOWN INDICATION
     Route: 048

REACTIONS (7)
  - Accidental poisoning [None]
  - Dystonia [None]
  - Mental status changes [None]
  - Vomiting [None]
  - Agitation [None]
  - Blood pressure decreased [None]
  - Hyperhidrosis [None]
